FAERS Safety Report 22258254 (Version 2)
Quarter: 2023Q2

REPORT INFORMATION
  Report Type: Spontaneous
  Country: US (occurrence: None)
  Receive Date: 20230427
  Receipt Date: 20230505
  Transmission Date: 20230721
  Serious: Yes (Other)
  Sender: FDA-Public Use
  Company Number: US-ROCHE-3336300

PATIENT
  Age: 60 Year
  Sex: Male

DRUGS (12)
  1. RITUXAN [Suspect]
     Active Substance: RITUXIMAB
     Indication: Diffuse large B-cell lymphoma
     Dosage: HE RECEIVED THIS IN RCHOP
     Route: 065
     Dates: start: 20200620
  2. RITUXAN [Suspect]
     Active Substance: RITUXIMAB
     Dosage: HE RECEIVED THIS IN MATRIX CHEMO FOR 4 CYCLES
     Route: 065
     Dates: start: 202112
  3. DOXORUBICIN [Concomitant]
     Active Substance: DOXORUBICIN
     Indication: Diffuse large B-cell lymphoma
     Dosage: RECEIVED AS RCHOP
     Dates: start: 20200620, end: 20201020
  4. VINCRISTINE [Concomitant]
     Active Substance: VINCRISTINE
     Indication: Diffuse large B-cell lymphoma
     Dosage: RECEIVED AS RCHOP
     Dates: start: 20200620, end: 20201020
  5. PREDNISONE [Concomitant]
     Active Substance: PREDNISONE
     Indication: Diffuse large B-cell lymphoma
     Dosage: RECEIVED AS RCHOP
     Dates: start: 20200620, end: 20201020
  6. CYCLOPHOSPHAMIDE [Concomitant]
     Active Substance: CYCLOPHOSPHAMIDE
     Indication: Diffuse large B-cell lymphoma
     Dosage: RECEIVED AS RCHOP
     Dates: start: 20200620, end: 20201020
  7. METHOTREXATE [Concomitant]
     Active Substance: METHOTREXATE
     Indication: Diffuse large B-cell lymphoma
     Dosage: RECEIVED AS MATRIX
     Dates: start: 202112
  8. CYTARABINE [Concomitant]
     Active Substance: CYTARABINE
     Indication: Diffuse large B-cell lymphoma
     Dosage: RECEIVED AS MATRIX
     Dates: start: 202112
  9. THIOTEPA [Concomitant]
     Active Substance: THIOTEPA
     Indication: Diffuse large B-cell lymphoma
     Dosage: RECEIVED AS MATRIX
     Dates: start: 202112
  10. AUTOLOGOUS CELLS TRANSPLANT [Concomitant]
     Indication: Diffuse large B-cell lymphoma
     Dates: start: 20220321
  11. CHIMERIC ANTIGEN RECEPTOR (CAR) T-CELL THERAPY (UNK INGREDIENTS) [Concomitant]
     Indication: Diffuse large B-cell lymphoma
     Dosage: NO
     Dates: start: 20220927
  12. CYCLOPHOSPHAMIDE [Concomitant]
     Active Substance: CYCLOPHOSPHAMIDE
     Indication: Diffuse large B-cell lymphoma
     Dosage: RECEIVED AS RCHOP
     Dates: start: 20200620, end: 20201020

REACTIONS (1)
  - Diffuse large B-cell lymphoma recurrent [Unknown]

NARRATIVE: CASE EVENT DATE: 20220927
